FAERS Safety Report 15595267 (Version 3)
Quarter: 2018Q4

REPORT INFORMATION
  Report Type: Report from Study
  Country: US (occurrence: US)
  Receive Date: 20181107
  Receipt Date: 20181209
  Transmission Date: 20190205
  Serious: No
  Sender: FDA-Public Use
  Company Number: PHEH2018US045587

PATIENT
  Sex: Male

DRUGS (1)
  1. ENTRESTO [Suspect]
     Active Substance: SACUBITRIL\VALSARTAN
     Indication: PRODUCT USED FOR UNKNOWN INDICATION
     Dosage: UNK
     Route: 048

REACTIONS (6)
  - Asthenia [Unknown]
  - Dizziness [Recovering/Resolving]
  - Product prescribing error [Unknown]
  - Wrong technique in product usage process [Unknown]
  - Hypotension [Unknown]
  - Heart rate irregular [Unknown]
